FAERS Safety Report 4649590-4 (Version None)
Quarter: 2005Q2

REPORT INFORMATION
  Report Type: 
  Country: None (occurrence: None)
  Receive Date: 20050428
  Receipt Date: 20050428
  Transmission Date: 20051028
  Serious: Yes (Hospitalization)
  Sender: FDA-Public Use
  Company Number: None

PATIENT
  Age: 81 Year
  Sex: Male
  Weight: 71.6683 kg

DRUGS (2)
  1. ANCEF [Suspect]
     Indication: HIP FRACTURE
     Dosage: 1 GRAM  IV
     Route: 042
     Dates: start: 20050217
  2. ANCEF [Suspect]
     Indication: PREOPERATIVE CARE
     Dosage: 1 GRAM  IV
     Route: 042
     Dates: start: 20050217

REACTIONS (2)
  - HYPERSENSITIVITY [None]
  - RASH [None]
